FAERS Safety Report 9686426 (Version 2)
Quarter: 2013Q4

REPORT INFORMATION
  Report Type: Spontaneous
  Country: US (occurrence: US)
  Receive Date: 20131113
  Receipt Date: 20131113
  Transmission Date: 20140711
  Serious: Yes (Hospitalization)
  Sender: FDA-Public Use
  Company Number: US-BAXTER-2013BAX042621

PATIENT
  Age: 52 Year
  Sex: Male

DRUGS (2)
  1. DIANEAL PD2 (ULTRABAG) [Suspect]
     Indication: RENAL FAILURE
     Route: 033
     Dates: start: 201307
  2. DIANEAL PD2 (ULTRABAG) [Suspect]
     Indication: RENAL FAILURE
     Route: 033
     Dates: start: 201307

REACTIONS (1)
  - Fluid overload [Recovered/Resolved]
